FAERS Safety Report 24576592 (Version 2)
Quarter: 2024Q4

REPORT INFORMATION
  Report Type: Spontaneous
  Country: US (occurrence: US)
  Receive Date: 20241104
  Receipt Date: 20241118
  Transmission Date: 20250115
  Serious: Yes (Other)
  Sender: PFIZER
  Company Number: US-PFIZER INC-202400290908

PATIENT
  Age: 74 Year
  Sex: Male
  Weight: 95.25 kg

DRUGS (2)
  1. ZYVOX [Suspect]
     Active Substance: LINEZOLID
     Indication: Infection
     Dosage: 600 MG, 2X/DAY
  2. CEFDINIR [Concomitant]
     Active Substance: CEFDINIR
     Dosage: UNK

REACTIONS (9)
  - Toxic neuropathy [Unknown]
  - Anaemia [Unknown]
  - Neuropathy peripheral [Unknown]
  - Weight decreased [Unknown]
  - Gait inability [Unknown]
  - Balance disorder [Unknown]
  - Constipation [Unknown]
  - Male sexual dysfunction [Unknown]
  - Product use issue [Unknown]

NARRATIVE: CASE EVENT DATE: 20230101
